FAERS Safety Report 23222235 (Version 1)
Quarter: 2023Q4

REPORT INFORMATION
  Report Type: Spontaneous
  Country: ES (occurrence: None)
  Receive Date: 20231123
  Receipt Date: 20231123
  Transmission Date: 20240109
  Serious: Yes (Other)
  Sender: FDA-Public Use
  Company Number: 2023A262127

PATIENT
  Sex: Female

DRUGS (1)
  1. ANIFROLUMAB [Suspect]
     Active Substance: ANIFROLUMAB
     Indication: Systemic lupus erythematosus
     Route: 042

REACTIONS (3)
  - Myocarditis [Unknown]
  - Nephrotic syndrome [Unknown]
  - Peripheral ischaemia [Unknown]
